FAERS Safety Report 19535414 (Version 1)
Quarter: 2021Q3

REPORT INFORMATION
  Report Type: Spontaneous
  Country: US (occurrence: US)
  Receive Date: 20210713
  Receipt Date: 20210713
  Transmission Date: 20211014
  Serious: Yes (Hospitalization)
  Sender: FDA-Public Use
  Company Number: None

PATIENT
  Age: 49 Year
  Sex: Female

DRUGS (19)
  1. DULOEXTINE [Concomitant]
  2. ONDANSETRON [Concomitant]
     Active Substance: ONDANSETRON
  3. RYBELSUS [Concomitant]
     Active Substance: SEMAGLUTIDE
  4. BENADRYL ALG [Concomitant]
  5. BENZONATATE. [Concomitant]
     Active Substance: BENZONATATE
  6. ATROVENT HFA [Concomitant]
     Active Substance: IPRATROPIUM BROMIDE
  7. PREDNISONE. [Concomitant]
     Active Substance: PREDNISONE
  8. MONTELUKAST [Concomitant]
     Active Substance: MONTELUKAST SODIUM
  9. TOPIRAMATE. [Concomitant]
     Active Substance: TOPIRAMATE
  10. CELEBREX [Concomitant]
     Active Substance: CELECOXIB
  11. MUCINEX ER [Concomitant]
  12. ROSUVASTATIN. [Concomitant]
     Active Substance: ROSUVASTATIN
  13. SEROQUEL [Concomitant]
     Active Substance: QUETIAPINE FUMARATE
  14. FLUTICA/SALME [Concomitant]
  15. GABAPENTIN. [Concomitant]
     Active Substance: GABAPENTIN
  16. OXYCODONE AND ACETAMINOPHEN [Concomitant]
     Active Substance: ACETAMINOPHEN\OXYCODONE HYDROCHLORIDE
  17. SYNTHROID [Concomitant]
     Active Substance: LEVOTHYROXINE SODIUM
  18. ENBREL [Suspect]
     Active Substance: ETANERCEPT
     Indication: PSORIASIS
     Route: 058
     Dates: start: 20210224
  19. ALBUTEROL HFA [Concomitant]
     Active Substance: ALBUTEROL SULFATE

REACTIONS (3)
  - Pneumonia fungal [None]
  - Asthma [None]
  - Pneumonia [None]

NARRATIVE: CASE EVENT DATE: 20210705
